FAERS Safety Report 23196972 (Version 1)
Quarter: 2023Q4

REPORT INFORMATION
  Report Type: Spontaneous
  Country: US (occurrence: None)
  Receive Date: 20231117
  Receipt Date: 20231117
  Transmission Date: 20240110
  Serious: Yes (Hospitalization)
  Sender: FDA-Public Use
  Company Number: None

PATIENT
  Sex: Female
  Weight: 83.6 kg

DRUGS (3)
  1. CYTARABINE [Suspect]
     Active Substance: CYTARABINE
     Dates: end: 20231029
  2. METHOTREXATE [Suspect]
     Active Substance: METHOTREXATE
     Indication: Product used for unknown indication
     Dates: end: 20231027
  3. PONATINIB [Suspect]
     Active Substance: PONATINIB
     Indication: Product used for unknown indication
     Dates: end: 20231105

REACTIONS (7)
  - Febrile neutropenia [None]
  - Abdominal pain [None]
  - Diverticulitis [None]
  - Blood culture positive [None]
  - Escherichia infection [None]
  - Sepsis [None]
  - Abdominal infection [None]

NARRATIVE: CASE EVENT DATE: 20231105
